FAERS Safety Report 24369741 (Version 1)
Quarter: 2024Q3

REPORT INFORMATION
  Report Type: Other
  Country: CA (occurrence: CA)
  Receive Date: 20240927
  Receipt Date: 20240927
  Transmission Date: 20241017
  Serious: Yes (Life-Threatening, Other)
  Sender: APOTEX
  Company Number: CA-APOTEX-2024AP011301

PATIENT

DRUGS (1)
  1. GABAPENTIN [Suspect]
     Active Substance: GABAPENTIN
     Indication: Mental disability
     Dosage: UNK
     Route: 065

REACTIONS (6)
  - Impaired work ability [Not Recovered/Not Resolved]
  - Insomnia [Not Recovered/Not Resolved]
  - Physical disability [Not Recovered/Not Resolved]
  - Drug titration [Not Recovered/Not Resolved]
  - Dyspnoea [Not Recovered/Not Resolved]
  - Withdrawal syndrome [Not Recovered/Not Resolved]
